FAERS Safety Report 5887378-7 (Version None)
Quarter: 2008Q3

REPORT INFORMATION
  Report Type: 
  Country: None (occurrence: None)
  Receive Date: 20080915
  Receipt Date: 20080829
  Transmission Date: 20090109
  Serious: Yes (Hospitalization)
  Sender: FDA-Public Use
  Company Number: 8036609

PATIENT
  Age: 53 Year
  Sex: Male

DRUGS (8)
  1. THEOPHYLLINE [Suspect]
     Indication: ASTHMA
     Dosage: 200 MG 2/D INH
     Route: 055
  2. THEOPHYLLINE [Suspect]
     Indication: ASTHMA
     Dosage: IV
     Route: 042
  3. THEOPHYLLINE [Suspect]
     Indication: ASTHMA
     Dosage: IVI
  4. ALBUTEROL [Concomitant]
  5. IPRATROPIUM BROMIDE [Concomitant]
  6. NIFEDIPINE [Concomitant]
  7. TERBUTALINE SULFATE [Concomitant]
  8. MAGNESIUM SULFATE [Concomitant]

REACTIONS (13)
  - ABNORMAL BEHAVIOUR [None]
  - ASTHMA [None]
  - CONDITION AGGRAVATED [None]
  - DRUG LEVEL ABOVE THERAPEUTIC [None]
  - DRUG SCREEN POSITIVE [None]
  - DRUG TOXICITY [None]
  - GRAND MAL CONVULSION [None]
  - LUNG HYPERINFLATION [None]
  - MUSCULAR WEAKNESS [None]
  - POSTURE ABNORMAL [None]
  - RESPIRATORY DISTRESS [None]
  - RESPIRATORY RATE INCREASED [None]
  - STATUS EPILEPTICUS [None]
